FAERS Safety Report 9791789 (Version 1)
Quarter: 2014Q1

REPORT INFORMATION
  Report Type: Spontaneous
  Country: US (occurrence: US)
  Receive Date: 20140102
  Receipt Date: 20140102
  Transmission Date: 20141002
  Serious: Yes (Hospitalization)
  Sender: FDA-Public Use
  Company Number: US-BAYER-2013-159717

PATIENT
  Age: 16 Year
  Sex: Female
  Weight: 61 kg

DRUGS (2)
  1. YASMIN [Suspect]
     Dosage: UNK
  2. OCELLA [Suspect]

REACTIONS (1)
  - Pulmonary embolism [None]
